APPROVED DRUG PRODUCT: DOXYCYCLINE
Active Ingredient: DOXYCYCLINE
Strength: EQ 50MG BASE
Dosage Form/Route: TABLET;ORAL
Application: A065471 | Product #001
Applicant: SUN PHARMACEUTICAL INDUSTRIES INC
Approved: Apr 17, 2009 | RLD: No | RS: No | Type: DISCN